FAERS Safety Report 9730892 (Version 1)
Quarter: 2013Q4

REPORT INFORMATION
  Report Type: Spontaneous
  Country: DE (occurrence: DE)
  Receive Date: 20131203
  Receipt Date: 20131203
  Transmission Date: 20140711
  Serious: Yes (Hospitalization)
  Sender: FDA-Public Use
  Company Number: DE-BAYER-2013-143473

PATIENT
  Age: 22 Year
  Sex: Female

DRUGS (1)
  1. MIRENA [Suspect]
     Indication: CONTRACEPTION
     Dosage: 20 MCG/24HR, CONT
     Route: 015
     Dates: start: 20131108, end: 20131110

REACTIONS (6)
  - Endometritis [Recovered/Resolved]
  - Pelvic pain [Recovered/Resolved]
  - Pyrexia [Recovered/Resolved]
  - Uterine haemorrhage [None]
  - Sensory disturbance [Recovered/Resolved]
  - Abdominal pain lower [Recovered/Resolved]
